FAERS Safety Report 11869169 (Version 2)
Quarter: 2016Q1

REPORT INFORMATION
  Report Type: Spontaneous
  Country: IT (occurrence: IT)
  Receive Date: 20151226
  Receipt Date: 20160314
  Transmission Date: 20160526
  Serious: Yes (Hospitalization)
  Sender: FDA-Public Use
  Company Number: IT-ACCORD-036539

PATIENT
  Age: 87 Year
  Sex: Female

DRUGS (6)
  1. METFORMIN [Concomitant]
     Active Substance: METFORMIN HYDROCHLORIDE
  2. ACETYLSALICYLIC ACID [Concomitant]
     Active Substance: ASPIRIN
  3. LANSOPRAZOLE. [Concomitant]
     Active Substance: LANSOPRAZOLE
  4. ALENDRONATE SODIUM W/CALCIUM/COLECALCIFEROL [Concomitant]
     Dosage: 70 MG + 5600 IU
  5. ALLOPURINOL. [Suspect]
     Active Substance: ALLOPURINOL
     Indication: HYPERURICAEMIA
  6. HYDROCHLOROTHIAZIDE/VALSARTAN [Concomitant]
     Dosage: 80/12.5 MG

REACTIONS (1)
  - Acute febrile neutrophilic dermatosis [Recovered/Resolved]
